FAERS Safety Report 19717728 (Version 1)
Quarter: 2021Q3

REPORT INFORMATION
  Report Type: Spontaneous
  Country: VN (occurrence: VN)
  Receive Date: 20210818
  Receipt Date: 20210818
  Transmission Date: 20211014
  Serious: Yes (Other)
  Sender: FDA-Public Use
  Company Number: VN-ROCHE-2890228

PATIENT
  Age: 52 Year
  Sex: Female

DRUGS (1)
  1. AVASTIN [Suspect]
     Active Substance: BEVACIZUMAB
     Indication: PRODUCT USED FOR UNKNOWN INDICATION
     Route: 065

REACTIONS (7)
  - Intestinal obstruction [Unknown]
  - Musculoskeletal stiffness [Unknown]
  - Abdominal pain lower [Unknown]
  - Abdominal pain [Unknown]
  - Spinal osteoarthritis [Unknown]
  - Hypoaesthesia [Unknown]
  - Colitis [Unknown]
